FAERS Safety Report 15128849 (Version 1)
Quarter: 2018Q3

REPORT INFORMATION
  Report Type: Spontaneous
  Country: CN (occurrence: CN)
  Receive Date: 20180711
  Receipt Date: 20180711
  Transmission Date: 20181010
  Serious: Yes (Death, Other)
  Sender: FDA-Public Use
  Company Number: CN-BAXTER-2018BAX018838

PATIENT
  Age: 47 Year
  Sex: Female
  Weight: 60 kg

DRUGS (6)
  1. 20% MANNITOL INJECTION [Suspect]
     Active Substance: MANNITOL
     Indication: RESPIRATORY ARREST
     Route: 041
     Dates: start: 20180417, end: 20180421
  2. GLYCEROL FRUCTOSE [Suspect]
     Active Substance: FRUCTOSE\GLYCERIN
     Indication: RESPIRATORY ARREST
     Route: 042
     Dates: start: 20180421
  3. GLYCEROL FRUCTOSE [Suspect]
     Active Substance: FRUCTOSE\GLYCERIN
     Indication: RESUSCITATION
  4. 20% MANNITOL INJECTION [Suspect]
     Active Substance: MANNITOL
     Indication: RESUSCITATION
  5. GLYCEROL FRUCTOSE [Suspect]
     Active Substance: FRUCTOSE\GLYCERIN
     Indication: HYPOXIC-ISCHAEMIC ENCEPHALOPATHY
  6. 20% MANNITOL INJECTION [Suspect]
     Active Substance: MANNITOL
     Indication: HYPOXIC-ISCHAEMIC ENCEPHALOPATHY

REACTIONS (6)
  - Hypernatraemia [None]
  - Hyperkalaemia [None]
  - Death [Fatal]
  - Refusal of treatment by relative [None]
  - Renal impairment [Not Recovered/Not Resolved]
  - Blood creatinine increased [None]

NARRATIVE: CASE EVENT DATE: 20180421
